FAERS Safety Report 23281722 (Version 4)
Quarter: 2024Q4

REPORT INFORMATION
  Report Type: Report from Study
  Country: IN (occurrence: IN)
  Receive Date: 20231211
  Receipt Date: 20241003
  Transmission Date: 20250115
  Serious: Yes (Hospitalization)
  Sender: ROCHE
  Company Number: IN-ROCHE-3469732

PATIENT

DRUGS (1)
  1. RITUXIMAB [Suspect]
     Active Substance: RITUXIMAB
     Indication: Multiple sclerosis
     Dosage: 500 OR 1000 MG
     Route: 065

REACTIONS (2)
  - COVID-19 [Unknown]
  - Off label use [Unknown]
